FAERS Safety Report 7907333-2 (Version None)
Quarter: 2011Q4

REPORT INFORMATION
  Report Type: 
  Country: None (occurrence: None)
  Receive Date: 20111110
  Receipt Date: 20111103
  Transmission Date: 20120403
  Serious: Yes (Hospitalization)
  Sender: FDA-Public Use
  Company Number: FR-GLAXOSMITHKLINE-B0760305B

PATIENT
  Sex: Female

DRUGS (5)
  1. OESTROPROGESTATIVE CONTRACEPTION [Concomitant]
     Indication: CONTRACEPTION
     Route: 064
  2. CELESTONE [Concomitant]
     Indication: THREATENED LABOUR
     Dosage: 12MG TWICE PER DAY
     Route: 064
  3. URBANYL [Suspect]
     Indication: EPILEPSY
     Dosage: 10MG TWICE PER DAY
     Route: 064
  4. LAMICTAL [Suspect]
     Indication: EPILEPSY
     Dosage: 150MG TWICE PER DAY
     Route: 064
  5. ZONEGRAN [Suspect]
     Indication: EPILEPSY
     Dosage: 100MG TWICE PER DAY
     Route: 064

REACTIONS (3)
  - FOETAL EXPOSURE DURING PREGNANCY [None]
  - GASTROOESOPHAGEAL REFLUX DISEASE [None]
  - FOETAL GROWTH RESTRICTION [None]
